FAERS Safety Report 5973551-6 (Version None)
Quarter: 2008Q4

REPORT INFORMATION
  Report Type: 
  Country: None (occurrence: None)
  Receive Date: 20081201
  Receipt Date: 20081119
  Transmission Date: 20090506
  Serious: Yes (Other)
  Sender: FDA-Public Use
  Company Number: JP-ASTRAZENECA-2008SE05472

PATIENT
  Age: 81 Year
  Sex: Female
  Weight: 62 kg

DRUGS (5)
  1. BLOPRESS PLUS [Suspect]
     Indication: HYPERTENSION
     Dosage: CANDESARTAN CILEXETIL 16 MG AND 25 MG HCT
     Route: 048
     Dates: start: 20080709, end: 20080813
  2. ASPIRIN [Suspect]
     Route: 048
  3. LANSOPRAZOLE [Concomitant]
     Indication: REFLUX OESOPHAGITIS
     Route: 048
     Dates: start: 20070201
  4. SIMVASTATIN [Concomitant]
     Route: 048
  5. SEDO-CARENA [Concomitant]
     Indication: CARDIOMYOPATHY
     Route: 065

REACTIONS (2)
  - NAUSEA [None]
  - PETECHIAE [None]
